FAERS Safety Report 25509420 (Version 2)
Quarter: 2025Q3

REPORT INFORMATION
  Report Type: Spontaneous
  Country: US (occurrence: US)
  Receive Date: 20250703
  Receipt Date: 20250825
  Transmission Date: 20251021
  Serious: No
  Sender: CHATTEM
  Company Number: US-OPELLA-2025OHG020138

PATIENT

DRUGS (2)
  1. NICODERM CQ [Suspect]
     Active Substance: NICOTINE
     Indication: Product used for unknown indication
     Route: 003
  2. NICODERM CQ [Suspect]
     Active Substance: NICOTINE
     Route: 003

REACTIONS (2)
  - Palpitations [Unknown]
  - Product adhesion issue [Unknown]
